FAERS Safety Report 10240315 (Version 1)
Quarter: 2014Q2

REPORT INFORMATION
  Report Type: Spontaneous
  Country: FR (occurrence: FR)
  Receive Date: 20140617
  Receipt Date: 20140617
  Transmission Date: 20141212
  Serious: Yes (Hospitalization)
  Sender: FDA-Public Use
  Company Number: PHHY2014FR073666

PATIENT
  Age: 62 Year
  Sex: Male

DRUGS (2)
  1. ZOMETA [Suspect]
     Dosage: UNK UKN, UNK
     Dates: start: 2008, end: 2009
  2. KARDEGIC [Concomitant]
     Indication: CEREBROVASCULAR ACCIDENT
     Dosage: 300 MG, QD

REACTIONS (1)
  - Osteonecrosis [Unknown]
